FAERS Safety Report 7907443-X (Version None)
Quarter: 2011Q4

REPORT INFORMATION
  Report Type: 
  Country: None (occurrence: None)
  Receive Date: 20111110
  Receipt Date: 20111101
  Transmission Date: 20120403
  Serious: Yes (Hospitalization, Other)
  Sender: FDA-Public Use
  Company Number: CO-JNJFOC-20100705273

PATIENT
  Age: 39 Year
  Sex: Female
  Weight: 46 kg

DRUGS (4)
  1. MEROPENEM [Suspect]
     Indication: URINARY TRACT INFECTION
     Route: 042
     Dates: start: 20100717, end: 20100724
  2. GOLIMUMAB [Suspect]
     Indication: RHEUMATOID ARTHRITIS
     Route: 058
     Dates: start: 20100629
  3. GOLIMUMAB [Suspect]
     Route: 058
     Dates: start: 20100727
  4. METHOTREXATE [Suspect]
     Indication: RHEUMATOID ARTHRITIS
     Route: 048
     Dates: start: 20091210, end: 20100809

REACTIONS (2)
  - HEPATIC ENZYME INCREASED [None]
  - ARTHRITIS BACTERIAL [None]
